FAERS Safety Report 6080623-7 (Version None)
Quarter: 2009Q1

REPORT INFORMATION
  Report Type: 
  Country: None (occurrence: None)
  Receive Date: 20090217
  Receipt Date: 20090204
  Transmission Date: 20090719
  Serious: Yes (Other)
  Sender: FDA-Public Use
  Company Number: FR-ROCHE-612961

PATIENT
  Sex: Female

DRUGS (1)
  1. BONIVA [Suspect]
     Indication: OSTEOPOROSIS
     Dosage: DOSAGE REPORTED AS: 150 MG/MO
     Route: 048
     Dates: start: 20090201

REACTIONS (2)
  - HAEMOPTYSIS [None]
  - REGURGITATION [None]
